FAERS Safety Report 12855852 (Version 3)
Quarter: 2017Q4

REPORT INFORMATION
  Report Type: Spontaneous
  Country: DK (occurrence: DK)
  Receive Date: 20161018
  Receipt Date: 20171030
  Transmission Date: 20180320
  Serious: Yes (Other)
  Sender: FDA-Public Use
  Company Number: DK-BRISTOL-MYERS SQUIBB COMPANY-BMS-2016-086132

PATIENT
  Age: 11 Year
  Sex: Female

DRUGS (1)
  1. ABILIFY [Suspect]
     Active Substance: ARIPIPRAZOLE
     Indication: INCONTINENCE
     Dosage: 2.5 MG, QD
     Route: 065

REACTIONS (5)
  - Alopecia [Unknown]
  - Drug administered to patient of inappropriate age [Unknown]
  - Psychotic disorder [Unknown]
  - Depression [Unknown]
  - Product use in unapproved indication [Unknown]
